FAERS Safety Report 6371426-4 (Version None)
Quarter: 2009Q3

REPORT INFORMATION
  Report Type: 
  Country: None (occurrence: None)
  Receive Date: 20090923
  Receipt Date: 20071108
  Transmission Date: 20100115
  Serious: Yes (Other)
  Sender: FDA-Public Use
  Company Number: US-ASTRAZENECA-2007UW13898

PATIENT
  Age: 34 Year
  Sex: Female

DRUGS (18)
  1. SEROQUEL [Suspect]
     Indication: DEPRESSION
     Dosage: 25-100 MG
     Route: 048
     Dates: start: 20000101, end: 20050101
  2. SEROQUEL [Suspect]
     Indication: INSOMNIA
     Dosage: 25-100 MG
     Route: 048
     Dates: start: 20000101, end: 20050101
  3. SEROQUEL [Suspect]
     Dosage: 25 MG-100 MG
     Route: 048
     Dates: start: 20021011
  4. SEROQUEL [Suspect]
     Dosage: 25 MG-100 MG
     Route: 048
     Dates: start: 20021011
  5. LEXAPRO [Concomitant]
     Route: 048
  6. HYDROCODONE [Concomitant]
     Dosage: 10 MG/500 MG
     Route: 048
  7. CYCLOBENZAPRINE [Concomitant]
     Route: 048
  8. DIAZEPAM [Concomitant]
     Route: 048
  9. PHENTERMINE HYDROCHLORIDE [Concomitant]
     Route: 048
  10. ALPRAZOLAM [Concomitant]
     Route: 048
  11. SKELAXIN [Concomitant]
     Route: 048
  12. WELLBUTRIN [Concomitant]
     Route: 048
  13. KETOROLAC TROMETHAMINE [Concomitant]
     Route: 048
  14. MACROBID [Concomitant]
     Route: 048
  15. NAPROXEN [Concomitant]
     Route: 048
  16. ZELNORM [Concomitant]
     Route: 048
  17. NICOTINE [Concomitant]
     Route: 048
  18. CEPHALEXIN [Concomitant]
     Route: 048

REACTIONS (4)
  - MUSCLE STRAIN [None]
  - NECK PAIN [None]
  - PANCREATITIS ACUTE [None]
  - RADIUS FRACTURE [None]
